FAERS Safety Report 4842503-1 (Version None)
Quarter: 2005Q4

REPORT INFORMATION
  Report Type: 
  Country: None (occurrence: None)
  Receive Date: 20051129
  Receipt Date: 20051116
  Transmission Date: 20060501
  Serious: Yes (Death)
  Sender: FDA-Public Use
  Company Number: 219555

PATIENT
  Sex: Female

DRUGS (1)
  1. AVASTIN [Suspect]

REACTIONS (4)
  - BLADDER NECROSIS [None]
  - GASTROINTESTINAL NECROSIS [None]
  - GASTROINTESTINAL OEDEMA [None]
  - THROMBOSIS [None]
